FAERS Safety Report 8413620-4 (Version None)
Quarter: 2012Q2

REPORT INFORMATION
  Report Type: 
  Country: None (occurrence: None)
  Receive Date: 20120605
  Receipt Date: 20120522
  Transmission Date: 20120825
  Serious: Yes (Other)
  Sender: FDA-Public Use
  Company Number: JP-ROCHE-1060519

PATIENT
  Age: 68 Year
  Sex: Male

DRUGS (2)
  1. LUCENTIS [Suspect]
     Indication: AGE-RELATED MACULAR DEGENERATION
     Route: 050
  2. VISUDYNE [Suspect]
     Indication: AGE-RELATED MACULAR DEGENERATION
     Route: 042
     Dates: start: 20120420

REACTIONS (1)
  - RETINAL HAEMORRHAGE [None]
